FAERS Safety Report 16975194 (Version 3)
Quarter: 2020Q2

REPORT INFORMATION
  Report Type: Report from Study
  Country: US (occurrence: US)
  Receive Date: 20191030
  Receipt Date: 20200504
  Transmission Date: 20200713
  Serious: Yes (Hospitalization, Other)
  Sender: FDA-Public Use
  Company Number: US-BRISTOL-MYERS SQUIBB COMPANY-BMS-2019-097863

PATIENT
  Age: 77 Year
  Sex: Male
  Weight: 72.6 kg

DRUGS (12)
  1. FLOMAX [Concomitant]
     Active Substance: TAMSULOSIN HYDROCHLORIDE
     Indication: PRODUCT USED FOR UNKNOWN INDICATION
     Dosage: 0.4 MILLIGRAM, QD (NIGHTLY)
     Route: 048
  2. IPILIMUMAB [Suspect]
     Active Substance: IPILIMUMAB
     Indication: HEAD AND NECK CANCER
     Dosage: 76 MILLIGRAM
     Route: 042
     Dates: start: 20190424
  3. FLUORIDE [SODIUM FLUORIDE] [Concomitant]
     Active Substance: SODIUM FLUORIDE
     Indication: PRODUCT USED FOR UNKNOWN INDICATION
     Dosage: APPLY TO TEETH DAILY
     Route: 065
  4. HYDROCHLOROTHIAZIDE. [Concomitant]
     Active Substance: HYDROCHLOROTHIAZIDE
     Indication: PRODUCT USED FOR UNKNOWN INDICATION
     Dosage: 12.5 MILLIGRAM, QD
     Route: 048
  5. VITAMINS NOS [Concomitant]
     Active Substance: VITAMINS
     Indication: PRODUCT USED FOR UNKNOWN INDICATION
     Dosage: 1 TAB, QD, EVERY MORNING
     Route: 048
  6. SILVADENE [Concomitant]
     Active Substance: SILVER SULFADIAZINE
     Indication: PRODUCT USED FOR UNKNOWN INDICATION
     Dosage: APPLY TO AFFECTED AREA DAILY
     Route: 065
  7. LIPITOR [Concomitant]
     Active Substance: ATORVASTATIN CALCIUM
     Indication: PRODUCT USED FOR UNKNOWN INDICATION
     Dosage: 1 DOSAGE FORM, QD
     Route: 048
  8. NIVOLUMAB [Suspect]
     Active Substance: NIVOLUMAB
     Indication: LARYNGEAL SQUAMOUS CELL CARCINOMA
     Dosage: 229 MILLIGRAM
     Route: 042
     Dates: start: 20190424
  9. VALISONE [Concomitant]
     Active Substance: BETAMETHASONE VALERATE
     Indication: PRODUCT USED FOR UNKNOWN INDICATION
     Dosage: TWO TIMES A DAY
     Route: 061
  10. COLACE [Concomitant]
     Active Substance: DOCUSATE SODIUM
     Indication: PRODUCT USED FOR UNKNOWN INDICATION
     Dosage: 10 MILLILITER, QD
     Route: 048
  11. ALTACE [Concomitant]
     Active Substance: RAMIPRIL
     Indication: PRODUCT USED FOR UNKNOWN INDICATION
     Dosage: 10 MILLIGRAM, QD
     Route: 048
  12. TWOCAL HN [Concomitant]
     Active Substance: DIETARY SUPPLEMENT
     Indication: PRODUCT USED FOR UNKNOWN INDICATION
     Dosage: PEG TUBE ROUTE 4 (FOUR) TIMES A DAY VIA BOLUS FEEDS
     Route: 065

REACTIONS (3)
  - Laryngeal stenosis [Recovered/Resolved]
  - Pneumonia [Recovering/Resolving]
  - Tachycardia [Recovering/Resolving]

NARRATIVE: CASE EVENT DATE: 20191008
